FAERS Safety Report 23928627 (Version 2)
Quarter: 2025Q3

REPORT INFORMATION
  Report Type: Spontaneous
  Country: US (occurrence: US)
  Receive Date: 20240531
  Receipt Date: 20250703
  Transmission Date: 20251020
  Serious: No
  Sender: RADIUS PHARM
  Company Number: US-RADIUS HEALTH INC.-2023US005288

PATIENT
  Age: 64 Year
  Sex: Female

DRUGS (2)
  1. TYMLOS [Suspect]
     Active Substance: ABALOPARATIDE
     Indication: Senile osteoporosis
     Route: 058
     Dates: start: 20230919
  2. TYMLOS [Suspect]
     Active Substance: ABALOPARATIDE
     Route: 058
     Dates: start: 20231019

REACTIONS (12)
  - Product quality issue [Unknown]
  - Heart rate increased [Not Recovered/Not Resolved]
  - Drug hypersensitivity [Unknown]
  - Headache [Not Recovered/Not Resolved]
  - Hypotension [Unknown]
  - Dizziness [Unknown]
  - Intentional product misuse [Unknown]
  - Dysgeusia [Not Recovered/Not Resolved]
  - Strabismus [Unknown]
  - Condition aggravated [Unknown]
  - Drug ineffective [Unknown]
  - Fracture [Unknown]

NARRATIVE: CASE EVENT DATE: 20230919
